FAERS Safety Report 5168431-2 (Version None)
Quarter: 2006Q4

REPORT INFORMATION
  Report Type: 
  Country: None (occurrence: None)
  Receive Date: 20061208
  Receipt Date: 20060818
  Transmission Date: 20070319
  Serious: Yes (Hospitalization)
  Sender: FDA-Public Use
  Company Number: FR-BRISTOL-MYERS SQUIBB COMPANY-13482054

PATIENT
  Age: 32 Year
  Sex: Male

DRUGS (6)
  1. REVIA [Suspect]
     Route: 048
  2. MODITEN [Suspect]
  3. DEPAKOTE [Suspect]
     Indication: BIPOLAR DISORDER
  4. DOLIPRANE [Suspect]
  5. DEROXAT [Suspect]
  6. RISPERDAL [Suspect]
     Indication: BIPOLAR DISORDER

REACTIONS (2)
  - NEUTROPENIA [None]
  - THROMBOCYTOPENIA [None]
